FAERS Safety Report 15773785 (Version 6)
Quarter: 2025Q4

REPORT INFORMATION
  Report Type: Spontaneous
  Country: EU (occurrence: EU)
  Receive Date: 20181229
  Receipt Date: 20251129
  Transmission Date: 20260118
  Serious: Yes (Death, Hospitalization, Other)
  Sender: AUROBINDO
  Company Number: EU-AUROBINDO-AUR-APL-2018-063451

PATIENT
  Age: 80 Year
  Sex: Male
  Weight: 61 kg

DRUGS (7)
  1. CLARITHROMYCIN [Interacting]
     Active Substance: CLARITHROMYCIN
     Indication: Pneumonia
     Dosage: 500 MILLIGRAM, TWO TIMES A DAY (1000 MILLIGRAM DAILY)
  2. AMOXICILLIN\CLAVULANIC ACID [Suspect]
     Active Substance: AMOXICILLIN\CLAVULANIC ACID
     Indication: Pneumonia
     Dosage: UNK
  3. DABIGATRAN [Interacting]
     Active Substance: DABIGATRAN
     Indication: Atrial fibrillation
     Dosage: 220 MILLIGRAM, ONCE A DAY (110 MG, BID)
     Route: 065
  4. DABIGATRAN [Interacting]
     Active Substance: DABIGATRAN
     Indication: Cerebrovascular accident prophylaxis
     Dosage: 2 UNK, ONCE A DAY
     Route: 065
  5. PRADAXA [Interacting]
     Active Substance: DABIGATRAN ETEXILATE MESYLATE
     Indication: Cerebrovascular accident prophylaxis
     Dosage: 110 MILLIGRAM, ONCE A DAY
  6. PRADAXA [Interacting]
     Active Substance: DABIGATRAN ETEXILATE MESYLATE
     Indication: Atrial fibrillation
     Dosage: 220 MILLIGRAM, ONCE A DAY
  7. PRADAXA [Interacting]
     Active Substance: DABIGATRAN ETEXILATE MESYLATE
     Dosage: UNK
     Route: 065

REACTIONS (5)
  - Epistaxis [Fatal]
  - Gingival bleeding [Fatal]
  - Gastrointestinal haemorrhage [Fatal]
  - Haemorrhage [Fatal]
  - Drug interaction [Unknown]
